FAERS Safety Report 10052997 (Version 1)
Quarter: 2014Q2

REPORT INFORMATION
  Report Type: Spontaneous
  Country: AU (occurrence: AU)
  Receive Date: 20140402
  Receipt Date: 20140402
  Transmission Date: 20141212
  Serious: Yes (Congenital Anomaly)
  Sender: FDA-Public Use
  Company Number: PHHY2014AU037313

PATIENT
  Sex: 0

DRUGS (2)
  1. CARBAMAZEPINE [Suspect]
     Route: 064
  2. LAMOTRIGINE [Suspect]
     Route: 064

REACTIONS (4)
  - Tracheo-oesophageal fistula [Unknown]
  - Abdominal transposition [Unknown]
  - Cardiac septal defect [Unknown]
  - Foetal exposure during pregnancy [Unknown]
